APPROVED DRUG PRODUCT: DARUNAVIR
Active Ingredient: DARUNAVIR
Strength: 800MG
Dosage Form/Route: TABLET;ORAL
Application: A202073 | Product #002 | TE Code: AB
Applicant: LUPIN LTD
Approved: Sep 29, 2022 | RLD: No | RS: No | Type: RX